FAERS Safety Report 10612921 (Version 1)
Quarter: 2014Q4

REPORT INFORMATION
  Report Type: Spontaneous
  Country: CH (occurrence: CH)
  Receive Date: 20141127
  Receipt Date: 20141127
  Transmission Date: 20150529
  Serious: Yes (Hospitalization, Other)
  Sender: FDA-Public Use
  Company Number: CH-ELI_LILLY_AND_COMPANY-CH201411008227

PATIENT
  Age: 73 Year
  Sex: Female
  Weight: 77 kg

DRUGS (11)
  1. TOREM                              /01036501/ [Concomitant]
     Active Substance: TORSEMIDE
     Dosage: UNK
  2. EFIENT [Suspect]
     Active Substance: PRASUGREL HYDROCHLORIDE
     Indication: ANTICOAGULANT THERAPY
     Dosage: 5 MG, QD
     Route: 048
     Dates: start: 2013
  3. MARCOUMAR [Suspect]
     Active Substance: PHENPROCOUMON
     Indication: ANTICOAGULANT THERAPY
     Dosage: UNK
     Route: 048
     Dates: start: 2013
  4. HEPARIN [Suspect]
     Active Substance: HEPARIN SODIUM
     Indication: ANTICOAGULANT THERAPY
     Route: 042
  5. CIRCADIN [Concomitant]
     Active Substance: MELATONIN
     Dosage: 2 MG, QD
     Route: 048
  6. CONCOR [Concomitant]
     Active Substance: BISOPROLOL FUMARATE
     Dosage: 5 MG, QD
  7. MALTOFER                           /00383901/ [Concomitant]
     Dosage: 200 MG, QD
  8. PANTOZOL [Concomitant]
     Active Substance: PANTOPRAZOLE SODIUM
     Dosage: 80 MG, UNK
     Route: 048
  9. ATACAND [Concomitant]
     Active Substance: CANDESARTAN CILEXETIL
     Dosage: 4 MG, QD
     Route: 048
  10. KCL [Concomitant]
     Active Substance: POTASSIUM CHLORIDE
     Dosage: UNK
     Route: 048
  11. SEROQUEL [Concomitant]
     Active Substance: QUETIAPINE FUMARATE
     Dosage: 25 MG, QD
     Route: 048

REACTIONS (6)
  - Gastritis erosive [Unknown]
  - Haemorrhage [Unknown]
  - Fall [Unknown]
  - Anaemia [Recovered/Resolved]
  - Transient ischaemic attack [Unknown]
  - Gastrointestinal haemorrhage [Recovered/Resolved]

NARRATIVE: CASE EVENT DATE: 201402
